FAERS Safety Report 7276322-6 (Version None)
Quarter: 2011Q1

REPORT INFORMATION
  Report Type: 
  Country: None (occurrence: None)
  Receive Date: 20110131
  Receipt Date: 20110120
  Transmission Date: 20110831
  Serious: Yes (Hospitalization)
  Sender: FDA-Public Use
  Company Number: 2007-00571

PATIENT
  Age: 65 Year
  Sex: Female
  Weight: 53 kg

DRUGS (7)
  1. DECADRON [Concomitant]
  2. ZANTAC [Concomitant]
  3. ITRACONAZOLE [Concomitant]
  4. SELBEX (TEPRENONE) [Concomitant]
  5. VELCADE [Suspect]
     Indication: MULTIPLE MYELOMA
     Dosage: 1.30 MG/M2, INTRAVENOUS
     Route: 042
     Dates: start: 20070216, end: 20070330
  6. MAGNESIUM OXIDE (MAGNESIUM OXIDE) [Concomitant]
  7. ONE-ALPHA (ALFACALCIDOL) [Concomitant]

REACTIONS (3)
  - DUODENAL ULCER HAEMORRHAGE [None]
  - BLOOD LACTATE DEHYDROGENASE INCREASED [None]
  - THROMBOCYTOPENIA [None]
